FAERS Safety Report 14548546 (Version 1)
Quarter: 2018Q1

REPORT INFORMATION
  Report Type: Spontaneous
  Country: US (occurrence: US)
  Receive Date: 20180219
  Receipt Date: 20180219
  Transmission Date: 20180509
  Serious: Yes (Other)
  Sender: FDA-Public Use
  Company Number: US-ROCHE-1899006

PATIENT
  Sex: Female
  Weight: 102.15 kg

DRUGS (2)
  1. TOUJEO [Concomitant]
     Active Substance: INSULIN GLARGINE
     Dosage: ONGOING: YES
     Route: 065
  2. XOLAIR [Suspect]
     Active Substance: OMALIZUMAB
     Indication: URTICARIA CHRONIC
     Dosage: ONGOING: NO
     Route: 058
     Dates: start: 201501, end: 20170222

REACTIONS (1)
  - Transitional cell carcinoma [Unknown]
